FAERS Safety Report 10669761 (Version 1)
Quarter: 2014Q4

REPORT INFORMATION
  Report Type: Spontaneous
  Country: RU (occurrence: RU)
  Receive Date: 20141222
  Receipt Date: 20141222
  Transmission Date: 20150529
  Serious: Yes (Hospitalization)
  Sender: FDA-Public Use
  Company Number: RU-B.I. PHARMACEUTICALS,INC./RIDGEFIELD-2014-BI-61287RZ

PATIENT
  Age: 76 Year
  Sex: Female
  Weight: 74 kg

DRUGS (2)
  1. MOVALIS [Suspect]
     Active Substance: MELOXICAM
     Indication: PYREXIA
     Dosage: 15 MG
     Route: 030
     Dates: start: 20141004, end: 20141004
  2. INSULIN [Concomitant]
     Active Substance: INSULIN NOS
     Indication: DIABETES MELLITUS
     Route: 065

REACTIONS (3)
  - Abscess [Recovered/Resolved]
  - Medication error [Recovered/Resolved]
  - Haematoma [Recovered/Resolved]

NARRATIVE: CASE EVENT DATE: 20141004
